FAERS Safety Report 20424683 (Version 1)
Quarter: 2022Q1

REPORT INFORMATION
  Report Type: Spontaneous
  Country: SI (occurrence: SI)
  Receive Date: 20220203
  Receipt Date: 20220203
  Transmission Date: 20220423
  Serious: No
  Sender: FDA-Public Use
  Company Number: SI-EXELIXIS-CABO-21038899

PATIENT
  Age: 72 Year
  Sex: Male

DRUGS (2)
  1. CABOMETYX [Suspect]
     Active Substance: CABOZANTINIB S-MALATE
     Indication: Metastatic renal cell carcinoma
     Dosage: 60 MG
     Route: 048
     Dates: start: 201904
  2. CABOMETYX [Suspect]
     Active Substance: CABOZANTINIB S-MALATE
     Dosage: 40 MG
     Route: 048
     Dates: start: 201908

REACTIONS (12)
  - Pruritus [Unknown]
  - Palmar-plantar erythrodysaesthesia syndrome [Unknown]
  - Hypertension [Unknown]
  - Weight decreased [Unknown]
  - Hypothyroidism [Unknown]
  - Cough [Unknown]
  - Abdominal pain [Unknown]
  - Pain in extremity [Unknown]
  - Dyspepsia [Unknown]
  - Dry skin [Unknown]
  - Arthralgia [Unknown]
  - Malignant neoplasm progression [Unknown]
